FAERS Safety Report 6333760-3 (Version None)
Quarter: 2009Q3

REPORT INFORMATION
  Report Type: 
  Country: None (occurrence: None)
  Receive Date: 20090829
  Receipt Date: 20090604
  Transmission Date: 20100115
  Serious: No
  Sender: FDA-Public Use
  Company Number: US-ABBOTT-09P-163-0577935-00

PATIENT
  Sex: Male
  Weight: 72.186 kg

DRUGS (4)
  1. SIMCOR [Suspect]
     Indication: LOW DENSITY LIPOPROTEIN INCREASED
     Dosage: 500MG/20MG X 2 TABLETS AT 500MG/20MG X 2 TABLETS AT BEDTIME DAILY
     Route: 048
     Dates: start: 20090501
  2. ASPIRIN [Concomitant]
     Indication: DRUG USE FOR UNKNOWN INDICATION
     Dosage: 81 MG DAILY AT BEDTIME
     Route: 048
  3. M.V.I. [Concomitant]
     Indication: DRUG USE FOR UNKNOWN INDICATION
  4. ALEVE [Concomitant]
     Indication: ARTHRALGIA

REACTIONS (3)
  - FEELING HOT [None]
  - FLUSHING [None]
  - PRURITUS [None]
